FAERS Safety Report 18890189 (Version 1)
Quarter: 2021Q1

REPORT INFORMATION
  Report Type: Spontaneous
  Country: TR (occurrence: TR)
  Receive Date: 20210214
  Receipt Date: 20210214
  Transmission Date: 20210420
  Serious: Yes (Hospitalization, Other)
  Sender: FDA-Public Use
  Company Number: TR-TEVA-2021-TR-1879413

PATIENT
  Sex: Female

DRUGS (15)
  1. ACITRETIN. [Suspect]
     Active Substance: ACITRETIN
     Indication: HIDRADENITIS
     Dosage: 35 MILLIGRAM DAILY; ACITRETIN AT A DOSE OF 35MG PER DAY FOR 2 TO 3 MONTHS
     Route: 065
  2. INFLIXIMAB [Suspect]
     Active Substance: INFLIXIMAB
     Indication: RENAL AMYLOIDOSIS
  3. AMOXICILLIN PLUS CLAVULANATE [Concomitant]
     Active Substance: AMOXICILLIN\CLAVULANIC ACID
     Indication: HIDRADENITIS
     Route: 065
  4. INFLIXIMAB [Suspect]
     Active Substance: INFLIXIMAB
     Indication: HIDRADENITIS
     Dosage: AT 0, 2, 6 TH WEEKS AND EVERY 8 WEEKS THEREAFTER FOR 30 WEEKS
     Route: 065
  5. TETRACYCLINE [Concomitant]
     Active Substance: TETRACYCLINE
     Indication: HIDRADENITIS
     Route: 065
  6. ADALIMUMAB [Suspect]
     Active Substance: ADALIMUMAB
     Indication: RENAL AMYLOIDOSIS
     Dosage: 40MG AT WEEK 2 AND 40MG EVERY 2 WEEKS FOR A YEAR
     Route: 065
  7. ISOTRETINOIN. [Suspect]
     Active Substance: ISOTRETINOIN
     Indication: HIDRADENITIS
     Dosage: 20 MG TO 50 MG/ DAY
     Route: 048
  8. CLINDAMYCIN. [Concomitant]
     Active Substance: CLINDAMYCIN
     Indication: HIDRADENITIS
     Route: 065
  9. ADALIMUMAB [Suspect]
     Active Substance: ADALIMUMAB
     Indication: HIDRADENITIS
     Dosage: ADALIMUMAB 80MG AT WEEK 0
     Route: 065
  10. ADALIMUMAB [Suspect]
     Active Substance: ADALIMUMAB
     Dosage: SHE THEN STARTED RECEIVING ADALIMUMAB AGAIN 160MG AT 0 WEEK AND 80MG AT SECOND WEEK, AND 40MG EVE...
     Route: 065
  11. USTEKINUMAB [Suspect]
     Active Substance: USTEKINUMAB
     Indication: RENAL AMYLOIDOSIS
  12. ADALIMUMAB [Suspect]
     Active Substance: ADALIMUMAB
     Route: 065
  13. USTEKINUMAB [Suspect]
     Active Substance: USTEKINUMAB
     Indication: HIDRADENITIS
     Dosage: USTEKINUMAB 45MG AT 0, 4, AND 16TH WEEKS DUE TO SIDE EFFECT
     Route: 065
  14. ISOTRETINOIN. [Suspect]
     Active Substance: ISOTRETINOIN
     Indication: RENAL AMYLOIDOSIS
  15. RIFAMPICIN [Concomitant]
     Active Substance: RIFAMPIN
     Indication: HIDRADENITIS
     Route: 065

REACTIONS (3)
  - Wound infection bacterial [Unknown]
  - Suicide attempt [Unknown]
  - Drug ineffective [Unknown]
